FAERS Safety Report 4366960-2 (Version None)
Quarter: 2004Q2

REPORT INFORMATION
  Report Type: 
  Country: None (occurrence: None)
  Receive Date: 20040528
  Receipt Date: 20040514
  Transmission Date: 20050107
  Serious: Yes (Death)
  Sender: FDA-Public Use
  Company Number: PHBS2004FR06531

PATIENT
  Age: 52 Year
  Sex: Male
  Weight: 71 kg

DRUGS (5)
  1. NEORAL [Suspect]
     Indication: PANCREAS ISLET CELL TRANSPLANT
     Dosage: 5 MG/KG/DAY
     Route: 065
  2. SIMULECT [Suspect]
     Indication: PANCREAS ISLET CELL TRANSPLANT
     Dosage: 20 MG, ONCE/SINGLE (DAY 0)
     Route: 042
  3. SIMULECT [Suspect]
     Dosage: 20 MG, ONCE/SINGLE (DAY 4)
     Route: 042
  4. EVEROLIMUS [Suspect]
     Indication: PANCREAS ISLET CELL TRANSPLANT
     Dosage: 1.5 MG, BID
     Route: 065
  5. INSULIN [Concomitant]

REACTIONS (2)
  - LUNG DISORDER [None]
  - LUNG INFECTION [None]
